FAERS Safety Report 13544650 (Version 1)
Quarter: 2017Q2

REPORT INFORMATION
  Report Type: Spontaneous
  Country: US (occurrence: US)
  Receive Date: 20170513
  Receipt Date: 20170513
  Transmission Date: 20170830
  Serious: No
  Sender: FDA-Public Use
  Company Number: None

PATIENT
  Sex: Female

DRUGS (1)
  1. ATORVASTATIN 10 MG TABLETS [Suspect]
     Active Substance: ATORVASTATIN
     Indication: BLOOD CHOLESTEROL ABNORMAL
     Route: 048
     Dates: start: 20170206, end: 20170412

REACTIONS (7)
  - Abnormal behaviour [None]
  - Movement disorder [None]
  - Amnesia [None]
  - Cognitive disorder [None]
  - Musculoskeletal pain [None]
  - Irritability [None]
  - Feeling abnormal [None]
